FAERS Safety Report 6734321-4 (Version None)
Quarter: 2010Q2

REPORT INFORMATION
  Report Type: 
  Country: None (occurrence: None)
  Receive Date: 20100520
  Receipt Date: 20100406
  Transmission Date: 20101027
  Serious: Yes (Other)
  Sender: FDA-Public Use
  Company Number: US-BAXTER-2009BH019099

PATIENT
  Age: 22 Year
  Sex: Female
  Weight: 61 kg

DRUGS (32)
  1. HEPARIN SODIUM INJECTION [Suspect]
     Indication: HAEMODIALYSIS
     Route: 041
     Dates: start: 20070925, end: 20070928
  2. HEPARIN SODIUM INJECTION [Suspect]
     Indication: ANTICOAGULANT THERAPY
     Route: 041
     Dates: start: 20070925, end: 20070928
  3. HEPARIN SODIUM INJECTION [Suspect]
     Route: 042
     Dates: start: 20071206, end: 20071206
  4. HEPARIN SODIUM INJECTION [Suspect]
     Route: 042
     Dates: start: 20071206, end: 20071206
  5. HEPARIN SODIUM INJECTION [Suspect]
     Route: 042
     Dates: start: 20071212, end: 20071212
  6. HEPARIN SODIUM INJECTION [Suspect]
     Route: 042
     Dates: start: 20071212, end: 20071212
  7. HEPARIN SODIUM INJECTION [Suspect]
     Route: 040
     Dates: start: 20090101
  8. HEPARIN SODIUM INJECTION [Suspect]
     Route: 040
     Dates: start: 20090101
  9. HEPARIN SODIUM INJECTION [Suspect]
     Route: 042
     Dates: start: 20071208, end: 20071210
  10. HEPARIN SODIUM INJECTION [Suspect]
     Route: 042
     Dates: start: 20071208, end: 20071210
  11. HEPARIN SODIUM INJECTION [Suspect]
     Route: 042
     Dates: start: 20070918, end: 20080512
  12. HEPARIN SODIUM INJECTION [Suspect]
     Route: 042
     Dates: start: 20070918, end: 20080512
  13. HEPARIN SODIUM INJECTION [Suspect]
     Route: 042
     Dates: start: 20090101
  14. HEPARIN SODIUM INJECTION [Suspect]
     Route: 042
     Dates: start: 20090101
  15. HEPARIN SODIUM INJECTION [Suspect]
     Route: 040
     Dates: start: 20071206, end: 20071206
  16. HEPARIN SODIUM INJECTION [Suspect]
     Route: 040
     Dates: start: 20071206, end: 20071206
  17. HEPARIN SODIUM INJECTION [Suspect]
     Route: 042
     Dates: start: 20080208, end: 20090507
  18. HEPARIN SODIUM INJECTION [Suspect]
     Route: 042
     Dates: start: 20080208, end: 20090507
  19. HEPARIN SODIUM INJECTION [Suspect]
     Route: 040
     Dates: start: 20071208, end: 20071208
  20. HEPARIN SODIUM INJECTION [Suspect]
     Route: 040
     Dates: start: 20071208, end: 20071208
  21. PREDNISONE TAB [Concomitant]
     Indication: DRUG USE FOR UNKNOWN INDICATION
     Route: 065
  22. AMITRIPTLINE HYDROCHLORIDE TAB [Concomitant]
     Indication: DRUG USE FOR UNKNOWN INDICATION
     Route: 065
  23. SENSIPAR [Concomitant]
     Indication: DRUG USE FOR UNKNOWN INDICATION
     Route: 065
  24. HYDROXYCHLOROQUINE SULFATE [Concomitant]
     Indication: DRUG USE FOR UNKNOWN INDICATION
     Route: 065
  25. RENALTABS [Concomitant]
     Indication: DRUG USE FOR UNKNOWN INDICATION
     Route: 048
  26. VITAMIN E [Concomitant]
     Indication: DRUG USE FOR UNKNOWN INDICATION
     Route: 065
  27. PROPRANOLOL [Concomitant]
     Indication: DRUG USE FOR UNKNOWN INDICATION
     Route: 048
  28. OMEPRAZOLE [Concomitant]
     Indication: DRUG USE FOR UNKNOWN INDICATION
     Route: 065
  29. BUTALBITAL W/ ASPIRIN + CAFFEINE [Concomitant]
     Indication: DRUG USE FOR UNKNOWN INDICATION
     Route: 065
  30. ZOLPIDEM [Concomitant]
     Indication: DRUG USE FOR UNKNOWN INDICATION
     Route: 065
  31. SEVELAMER [Concomitant]
     Indication: DRUG USE FOR UNKNOWN INDICATION
     Route: 065
  32. WARFARIN SODIUM [Concomitant]
     Indication: DRUG USE FOR UNKNOWN INDICATION
     Route: 065

REACTIONS (7)
  - ANAEMIA [None]
  - COAGULOPATHY [None]
  - DEEP VEIN THROMBOSIS [None]
  - DIEULAFOY'S VASCULAR MALFORMATION [None]
  - GASTRITIS EROSIVE [None]
  - HYPOTENSION [None]
  - PULMONARY EMBOLISM [None]
